FAERS Safety Report 16176045 (Version 2)
Quarter: 2019Q3

REPORT INFORMATION
  Report Type: Spontaneous
  Country: US (occurrence: US)
  Receive Date: 20190409
  Receipt Date: 20190923
  Transmission Date: 20191004
  Serious: No
  Sender: FDA-Public Use
  Company Number: US-BAYER-2019-068649

PATIENT
  Sex: Male

DRUGS (4)
  1. SEROQUEL [Concomitant]
     Active Substance: QUETIAPINE FUMARATE
  2. KOGENATE FS [Suspect]
     Active Substance: ANTIHEMOPHILIC FACTOR, HUMAN RECOMBINANT
     Indication: FACTOR VIII DEFICIENCY
     Dosage: MAJOR BLEEDS INFUSE 3800 U +/- 10% PER IV; MINOR BLEEDS INFUSE 1600 U +/- 10% EVERY 24 HOURS UNTIL R
     Route: 042
     Dates: start: 201808
  3. KOGENATE FS [Suspect]
     Active Substance: ANTIHEMOPHILIC FACTOR, HUMAN RECOMBINANT
     Indication: FACTOR VIII DEFICIENCY
     Dosage: MAJOR BLEEDS INFUSE 3800 U +/- 10% PER IV; MINOR BLEEDS INFUSE 1600 U +/- 10% EVERY 24 HOURS UNTIL R
     Route: 042
     Dates: start: 201808
  4. KOGENATE FS [Suspect]
     Active Substance: ANTIHEMOPHILIC FACTOR, HUMAN RECOMBINANT
     Indication: FACTOR VIII DEFICIENCY
     Dosage: MAJOR BLEEDS INFUSE 3800 U +/- 10% PER IV; MINOR BLEEDS INFUSE 1600 U +/- 10% EVERY 24 HOURS UNTIL R
     Route: 042
     Dates: start: 201808

REACTIONS (1)
  - Epistaxis [Not Recovered/Not Resolved]
